FAERS Safety Report 7002115-0 (Version None)
Quarter: 2010Q3

REPORT INFORMATION
  Report Type: 
  Country: None (occurrence: None)
  Receive Date: 20100920
  Receipt Date: 20080201
  Transmission Date: 20110219
  Serious: Yes (Hospitalization, Other)
  Sender: FDA-Public Use
  Company Number: US-ASTRAZENECA-2006UW17193

PATIENT
  Age: 386 Month
  Sex: Female

DRUGS (9)
  1. SEROQUEL [Suspect]
     Indication: BIPOLAR DISORDER
     Dosage: 100 MG TO 400 MG
     Route: 048
     Dates: start: 20020901, end: 20060901
  2. ZYPREXA [Suspect]
     Dates: start: 20010601, end: 20020601
  3. RISPERDAL [Concomitant]
     Dates: start: 20010101
  4. WELLBUTRIN [Concomitant]
     Dosage: 150 MG DISPENSED
     Route: 048
     Dates: start: 20020901
  5. CELEXA [Concomitant]
     Dosage: 400 MG DISPENSED
     Route: 048
     Dates: start: 20030801
  6. PROMETHAZINE [Concomitant]
     Indication: NAUSEA
     Dosage: 25 MG DISPENSED
     Route: 048
     Dates: start: 20030501
  7. MECLIZINE [Concomitant]
     Dosage: 25 MG DISPENSED
     Route: 048
     Dates: start: 20040601
  8. LORTAB [Concomitant]
     Indication: PAIN
     Route: 048
     Dates: start: 20041127
  9. LOPID [Concomitant]
     Route: 048
     Dates: start: 20041127

REACTIONS (5)
  - DIABETES MELLITUS [None]
  - PANCREATITIS [None]
  - PANCREATITIS ACUTE [None]
  - PANCREATITIS CHRONIC [None]
  - TYPE 2 DIABETES MELLITUS [None]
